FAERS Safety Report 8374660-7 (Version None)
Quarter: 2012Q2

REPORT INFORMATION
  Report Type: 
  Country: None (occurrence: None)
  Receive Date: 20120521
  Receipt Date: 20110606
  Transmission Date: 20120825
  Serious: No
  Sender: FDA-Public Use
  Company Number: US-ASTRAZENECA-2011SE39370

PATIENT
  Sex: Female

DRUGS (3)
  1. PRILOSEC OTC [Suspect]
     Indication: ABDOMINAL DISCOMFORT
     Route: 048
     Dates: start: 20110520, end: 20110605
  2. MELATONIN [Concomitant]
     Dosage: UNKNOWN
  3. ALLEGRA [Concomitant]
     Dosage: UNKNOWN

REACTIONS (4)
  - INCORRECT DOSE ADMINISTERED [None]
  - PYREXIA [None]
  - DRUG INEFFECTIVE [None]
  - INSOMNIA [None]
